FAERS Safety Report 8058822-4 (Version None)
Quarter: 2012Q1

REPORT INFORMATION
  Report Type: 
  Country: None (occurrence: None)
  Receive Date: 20120120
  Receipt Date: 20111219
  Transmission Date: 20120608
  Serious: No
  Sender: FDA-Public Use
  Company Number: US-BRISTOL-MYERS SQUIBB COMPANY-16302515

PATIENT

DRUGS (1)
  1. YERVOY [Suspect]
     Dosage: 1DF = 3 VIALS OF 2 50MG AND 1 200MG. NDC 00003-2327-11, EXP DATE JUL2013

REACTIONS (1)
  - INCORRECT STORAGE OF DRUG [None]
